FAERS Safety Report 10873177 (Version 1)
Quarter: 2015Q1

REPORT INFORMATION
  Report Type: Spontaneous
  Country: US (occurrence: US)
  Receive Date: 20150227
  Receipt Date: 20150227
  Transmission Date: 20150721
  Serious: Yes (Hospitalization, Other)
  Sender: FDA-Public Use
  Company Number: US-ELI_LILLY_AND_COMPANY-US201502008086

PATIENT
  Age: 72 Year
  Sex: Male

DRUGS (12)
  1. HUMALOG [Suspect]
     Active Substance: INSULIN LISPRO
     Indication: DIABETES MELLITUS
     Dosage: 3 U, UNKNOWN
     Route: 065
     Dates: start: 201404
  2. METOPROLOL [Concomitant]
     Active Substance: METOPROLOL
  3. LISINOPRIL. [Concomitant]
     Active Substance: LISINOPRIL
  4. DAILY MULTIVITAMIN [Concomitant]
     Active Substance: VITAMINS
  5. VITAMIN D [Concomitant]
     Active Substance: CHOLECALCIFEROL
  6. PLAVIX [Concomitant]
     Active Substance: CLOPIDOGREL BISULFATE
  7. WARFARIN [Suspect]
     Active Substance: WARFARIN
     Indication: PRODUCT USED FOR UNKNOWN INDICATION
     Route: 065
  8. LEVEMIR [Concomitant]
     Active Substance: INSULIN DETEMIR
  9. FISH OIL [Concomitant]
     Active Substance: FISH OIL
  10. VITAMIN C [Concomitant]
     Active Substance: ASCORBIC ACID
  11. ASPIRIN                            /00002701/ [Concomitant]
     Active Substance: ASPIRIN
  12. PRAVASTATIN [Concomitant]
     Active Substance: PRAVASTATIN\PRAVASTATIN SODIUM

REACTIONS (11)
  - Abscess [Unknown]
  - Incorrect product storage [Unknown]
  - Post procedural haemorrhage [Unknown]
  - Cerebrovascular accident [Unknown]
  - Proteinuria [Unknown]
  - Wound infection staphylococcal [Unknown]
  - Blood pressure inadequately controlled [Unknown]
  - Memory impairment [Unknown]
  - Blood glucose increased [Unknown]
  - Mental impairment [Unknown]
  - Pulmonary oedema [Unknown]

NARRATIVE: CASE EVENT DATE: 20141203
